FAERS Safety Report 7551008-9 (Version None)
Quarter: 2011Q2

REPORT INFORMATION
  Report Type: 
  Country: None (occurrence: None)
  Receive Date: 20110616
  Receipt Date: 20110604
  Transmission Date: 20111010
  Serious: Yes (Hospitalization)
  Sender: FDA-Public Use
  Company Number: CO-ELI_LILLY_AND_COMPANY-CO201106002183

PATIENT
  Age: 66 Year
  Sex: Female

DRUGS (4)
  1. TRAMADOL HCL [Concomitant]
  2. IBUPROFEN [Concomitant]
  3. FORTEO [Suspect]
     Indication: OSTEOPOROSIS
     Dosage: 20 UG, QD
     Route: 058
     Dates: start: 20100329, end: 20110603
  4. CALCIUM + VITAMIN D [Concomitant]
     Indication: SUPPLEMENTATION THERAPY

REACTIONS (1)
  - URINARY TRACT INFECTION [None]
